FAERS Safety Report 19059287 (Version 3)
Quarter: 2021Q2

REPORT INFORMATION
  Report Type: Report from Study
  Country: US (occurrence: US)
  Receive Date: 20210325
  Receipt Date: 20210522
  Transmission Date: 20210717
  Serious: No
  Sender: FDA-Public Use
  Company Number: NVSC2021US060859

PATIENT
  Age: 47 Year
  Sex: Female

DRUGS (1)
  1. GLATOPA [Suspect]
     Active Substance: GLATIRAMER ACETATE
     Indication: MULTIPLE SCLEROSIS
     Dosage: 20 MG, QD
     Route: 058
     Dates: start: 20210224, end: 20210315

REACTIONS (12)
  - Injection site reaction [Unknown]
  - Hypoaesthesia [Unknown]
  - Injection site discomfort [Unknown]
  - Headache [Unknown]
  - Injection site bruising [Unknown]
  - Ear pain [Unknown]
  - Injection site pain [Unknown]
  - Injection site erythema [Unknown]
  - Fear [Unknown]
  - Injection site mass [Unknown]
  - Hot flush [Unknown]
  - Syringe issue [Unknown]

NARRATIVE: CASE EVENT DATE: 20210427
